FAERS Safety Report 6228087-4 (Version None)
Quarter: 2009Q2

REPORT INFORMATION
  Report Type: 
  Country: None (occurrence: None)
  Receive Date: 20090612
  Receipt Date: 20090608
  Transmission Date: 20091009
  Serious: Yes (Death)
  Sender: FDA-Public Use
  Company Number: US-WATSON-2009-02381

PATIENT
  Age: 59 Year
  Sex: Male
  Weight: 89.342 kg

DRUGS (8)
  1. FENTANYL-100 [Suspect]
     Indication: BACK PAIN
     Dosage: 2 PATCHES, Q 72 HOURS
     Route: 062
     Dates: start: 20060101
  2. FENTANYL-100 [Suspect]
     Dosage: 2 PATCHES, UNK
     Route: 062
  3. XANAX [Concomitant]
     Indication: ANXIETY
     Dosage: UNK
     Route: 065
  4. ASPIRIN [Concomitant]
     Indication: DRUG USE FOR UNKNOWN INDICATION
     Dosage: UNK
     Route: 065
  5. PLAVIX [Concomitant]
     Indication: ANTICOAGULANT THERAPY
     Dosage: UNK
     Route: 065
  6. INSULIN [Concomitant]
     Indication: DIABETES MELLITUS
     Dosage: UNK
     Route: 065
  7. CYPROHEPTADINE HCL [Concomitant]
     Indication: ASTHMA
     Dosage: UNK
     Route: 065
  8. INHALER [Concomitant]
     Indication: ASTHMA
     Dosage: UNK
     Route: 065

REACTIONS (7)
  - BRAIN DEATH [None]
  - CARDIAC ARREST [None]
  - COMA [None]
  - FALL [None]
  - RESPIRATORY FAILURE [None]
  - SOMNOLENCE [None]
  - WEIGHT DECREASED [None]
